FAERS Safety Report 8417921-5 (Version None)
Quarter: 2012Q2

REPORT INFORMATION
  Report Type: 
  Country: None (occurrence: None)
  Receive Date: 20120601
  Receipt Date: 20120601
  Transmission Date: 20120825
  Serious: No
  Sender: FDA-Public Use
  Company Number: None

PATIENT
  Sex: Male
  Weight: 63.05 kg

DRUGS (1)
  1. METOPROLOL TARTRATE [Suspect]
     Dosage: TWICE DAILY
     Dates: start: 20120402, end: 20120421

REACTIONS (2)
  - NIGHTMARE [None]
  - SLEEP DISORDER [None]
